FAERS Safety Report 18274677 (Version 3)
Quarter: 2020Q3

REPORT INFORMATION
  Report Type: Report from Study
  Country: DE (occurrence: DE)
  Receive Date: 20200916
  Receipt Date: 20200922
  Transmission Date: 20201103
  Serious: Yes (Hospitalization)
  Sender: FDA-Public Use
  Company Number: DE-JNJFOC-20200910583

PATIENT
  Age: 48 Year
  Sex: Female
  Weight: 84 kg

DRUGS (9)
  1. MEZAVANT [Concomitant]
     Active Substance: MESALAMINE
     Route: 065
     Dates: start: 20190605
  2. MEZAVANT [Concomitant]
     Active Substance: MESALAMINE
     Indication: PRODUCT USED FOR UNKNOWN INDICATION
     Route: 065
     Dates: start: 2017
  3. SIMPONI [Suspect]
     Active Substance: GOLIMUMAB
     Route: 058
     Dates: start: 20190312
  4. AZATHIOPRINE. [Suspect]
     Active Substance: AZATHIOPRINE
     Indication: PRODUCT USED FOR UNKNOWN INDICATION
     Route: 065
     Dates: start: 20190226, end: 20190604
  5. L?THYROXINE                        /00068001/ [Concomitant]
     Active Substance: LEVOTHYROXINE
     Indication: PRODUCT USED FOR UNKNOWN INDICATION
     Route: 065
  6. SALOFALK                           /00000301/ [Concomitant]
     Active Substance: AMINOSALICYLIC ACID
     Route: 065
     Dates: start: 20190402
  7. SOTAHEXAL [Concomitant]
     Active Substance: SOTALOL
     Indication: TACHYCARDIA PAROXYSMAL
     Route: 065
  8. SIMPONI [Suspect]
     Active Substance: GOLIMUMAB
     Indication: COLITIS ULCERATIVE
     Route: 058
     Dates: start: 20181204
  9. MEZAVANT [Concomitant]
     Active Substance: MESALAMINE
     Route: 065
     Dates: start: 20190604

REACTIONS (1)
  - Blood loss anaemia [Recovered/Resolved with Sequelae]

NARRATIVE: CASE EVENT DATE: 20200828
